FAERS Safety Report 21947259 (Version 1)
Quarter: 2023Q1

REPORT INFORMATION
  Report Type: Report from Study
  Country: US (occurrence: US)
  Receive Date: 20230202
  Receipt Date: 20230202
  Transmission Date: 20230417
  Serious: Yes (Other)
  Sender: FDA-Public Use
  Company Number: US-PFIZER INC-PV202300018888

PATIENT
  Age: 52 Year
  Sex: Female

DRUGS (3)
  1. PAXLOVID [Suspect]
     Active Substance: NIRMATRELVIR\RITONAVIR
     Indication: COVID-19 treatment
     Dosage: UNK
  2. HUMIRA [Suspect]
     Active Substance: ADALIMUMAB
     Indication: Ankylosing spondylitis
     Dosage: UNK
     Route: 058
     Dates: start: 2009
  3. HUMIRA [Suspect]
     Active Substance: ADALIMUMAB
     Dosage: 40 MG (CITRATE FREE)
     Dates: start: 20220715, end: 2022

REACTIONS (5)
  - Ankylosing spondylitis [Unknown]
  - Lip blister [Not Recovered/Not Resolved]
  - Hypersensitivity [Recovering/Resolving]
  - Bronchitis [Unknown]
  - Adverse drug reaction [Unknown]
